FAERS Safety Report 8851094 (Version 1)
Quarter: 2012Q4

REPORT INFORMATION
  Report Type: 
  Country: US (occurrence: US)
  Receive Date: 20121019
  Receipt Date: 20121019
  Transmission Date: 20130627
  Serious: Yes (Hospitalization, Other)
  Sender: FDA-Public Use
  Company Number: US-BRISTOL-MYERS SQUIBB COMPANY-17029752

PATIENT
  Age: 45 Year
  Sex: Female

DRUGS (6)
  1. ABILIFY [Suspect]
     Indication: BIPOLAR DISORDER
     Route: 048
     Dates: start: 201009
  2. METHYLPHENIDATE [Suspect]
     Indication: NARCOLEPSY
     Dosage: 1 DF:2 tablets,also 1tab as needed,Methylphenidate ER 20mg 2tabs 3times/day
     Route: 048
  3. TOPAMAX [Suspect]
     Dosage: at bedtime
     Route: 048
  4. LAMICTAL [Suspect]
     Dosage: at bedtime
     Route: 048
  5. METHADONE [Suspect]
  6. HYDROCHLOROTHIAZIDE [Suspect]

REACTIONS (2)
  - Pancytopenia [Recovering/Resolving]
  - Mania [Unknown]
